FAERS Safety Report 7249384-X (Version None)
Quarter: 2011Q1

REPORT INFORMATION
  Report Type: 
  Country: None (occurrence: None)
  Receive Date: 20110128
  Receipt Date: 20101130
  Transmission Date: 20110831
  Serious: Yes (Hospitalization)
  Sender: FDA-Public Use
  Company Number: US-BAYER-201020590NA

PATIENT
  Sex: Female
  Weight: 159.9 kg

DRUGS (12)
  1. ALBUTEROL [Concomitant]
     Indication: ASTHMA
     Dosage: 90 ?G (DAILY DOSE), , RESPIRATORY
     Route: 055
  2. SYNTHROID [Concomitant]
     Indication: PULMONARY EMBOLISM
     Dosage: 50 ?G (DAILY DOSE), , ORAL
     Route: 048
     Dates: start: 20030101, end: 20100615
  3. BUPROPION [Concomitant]
     Indication: DEEP VEIN THROMBOSIS
     Dosage: DAILY AS DIRECTED
     Route: 048
     Dates: start: 20050101, end: 20100615
  4. PRILOSEC [Concomitant]
     Dosage: UNK
     Dates: start: 20080722
  5. YASMIN [Suspect]
  6. KETOROLAC [Concomitant]
     Dosage: 10 MG (DAILY DOSE), , ORAL
     Route: 048
     Dates: start: 20060511
  7. YASMIN [Suspect]
     Indication: MENORRHAGIA
     Route: 048
     Dates: start: 20060322, end: 20060420
  8. NSAID'S [Concomitant]
     Dosage: UNK
     Dates: start: 20080311
  9. FOSINOPRIL [Concomitant]
     Indication: HYPERTENSION
     Dosage: 40 MG (DAILY DOSE), , ORAL
     Route: 048
     Dates: start: 20040331, end: 20060613
  10. ADVAIR DISKUS 100/50 [Concomitant]
     Dosage: 1-2 PUFFS
     Route: 055
     Dates: start: 20020101, end: 20100615
  11. SINGULAIR [Concomitant]
     Indication: ASTHMA
     Dosage: 10 MG (DAILY DOSE), , ORAL
     Route: 048
     Dates: start: 20020101, end: 20100615
  12. NAPROSYN [Concomitant]
     Dosage: UNK
     Dates: start: 20080223

REACTIONS (4)
  - PAIN IN EXTREMITY [None]
  - DEEP VEIN THROMBOSIS [None]
  - OEDEMA PERIPHERAL [None]
  - PULMONARY EMBOLISM [None]
